FAERS Safety Report 4726425-2 (Version None)
Quarter: 2005Q3

REPORT INFORMATION
  Report Type: 
  Country: None (occurrence: None)
  Receive Date: 20050726
  Receipt Date: 20050317
  Transmission Date: 20060218
  Serious: No
  Sender: FDA-Public Use
  Company Number: REM_00090_2005

PATIENT
  Age: 40 Year
  Sex: Female
  Weight: 81 kg

DRUGS (8)
  1. REMODULIN [Suspect]
     Indication: PULMONARY HYPERTENSION
     Dosage: 13.75 NG/KG/MIN CONTINUOUS IV
     Route: 042
     Dates: start: 20050107, end: 20050227
  2. COUMADIN [Concomitant]
  3. LANTUS [Concomitant]
  4. METOPROLOL [Concomitant]
  5. FUROSEMIDE [Concomitant]
  6. PROTONIX [Concomitant]
  7. AMOXICILLIN [Concomitant]
  8. BIAXIN [Concomitant]

REACTIONS (1)
  - PAIN IN EXTREMITY [None]
